FAERS Safety Report 23043755 (Version 1)
Quarter: 2023Q4

REPORT INFORMATION
  Report Type: Other
  Country: DE (occurrence: None)
  Receive Date: 20231009
  Receipt Date: 20231009
  Transmission Date: 20240110
  Serious: Yes (Other)
  Sender: FDA-Public Use
  Company Number: DE-ROCHE-3180157

PATIENT
  Age: 61 Year
  Sex: Male
  Weight: 77 kg

DRUGS (10)
  1. OCREVUS [Suspect]
     Active Substance: OCRELIZUMAB
     Indication: Primary progressive multiple sclerosis
     Route: 042
     Dates: start: 20190110, end: 20190123
  2. OCREVUS [Suspect]
     Active Substance: OCRELIZUMAB
     Route: 042
     Dates: start: 20190718
  3. ARCOXIA [Concomitant]
     Active Substance: ETORICOXIB
     Dosage: DEFINITION OF THE INTERVAL: AS REQUIRED
     Route: 048
     Dates: start: 20181001
  4. CIALIS [Concomitant]
     Active Substance: TADALAFIL
     Indication: Neurogenic bladder
     Route: 048
     Dates: start: 20190901
  5. SOLIFENACIN [Concomitant]
     Active Substance: SOLIFENACIN
     Indication: Neurogenic bladder
     Route: 048
     Dates: start: 20210209
  6. COMIRNATY (TOZINAMERAN) [Concomitant]
     Active Substance: TOZINAMERAN
     Indication: COVID-19
     Dosage: DEFINITION OF THE INTERVAL: AS REQUIRED
     Route: 030
     Dates: start: 20211222, end: 20211222
  7. COMIRNATY (TOZINAMERAN) [Concomitant]
     Active Substance: TOZINAMERAN
     Dosage: DEFINITION OF THE INTERVAL: AS REQUIRED
     Route: 030
     Dates: start: 20210611, end: 20210611
  8. COMIRNATY (TOZINAMERAN) [Concomitant]
     Active Substance: TOZINAMERAN
     Dosage: DEFINITION OF THE INTERVAL: AS REQUIRED
     Route: 030
     Dates: start: 20210429, end: 20210429
  9. TAMSULOSIN [Concomitant]
     Active Substance: TAMSULOSIN
     Indication: Neurogenic bladder
     Route: 048
     Dates: start: 20170701
  10. NABIXIMOLS [Concomitant]
     Active Substance: NABIXIMOLS
     Route: 055
     Dates: start: 20200527, end: 20200630

REACTIONS (4)
  - Upper respiratory tract infection bacterial [Recovered/Resolved]
  - COVID-19 [Recovered/Resolved]
  - Urinary tract infection [Recovered/Resolved]
  - Infection [Unknown]

NARRATIVE: CASE EVENT DATE: 20220911
